FAERS Safety Report 9157113 (Version 1)
Quarter: 2013Q1

REPORT INFORMATION
  Report Type: Spontaneous
  Country: US (occurrence: None)
  Receive Date: 20130212
  Receipt Date: 20130212
  Transmission Date: 20140127
  Serious: Yes (Other)
  Sender: FDA-Public Use
  Company Number: ADE13-002

PATIENT
  Age: 82 Year
  Sex: Female
  Weight: 70 kg

DRUGS (5)
  1. HEPARIN SODIUM [Suspect]
     Indication: CORONARY ARTERY BYPASS
     Dosage: 5000 UNITS ONCE IV PUSH
     Route: 042
     Dates: start: 20121126, end: 20121126
  2. IV NITROGLYCERIN [Concomitant]
  3. INTRACORONAY ADENOSINE [Concomitant]
  4. IV VERSED [Concomitant]
  5. IV FENTANYL [Concomitant]

REACTIONS (1)
  - Drug effect decreased [None]
